FAERS Safety Report 4751567-5 (Version None)
Quarter: 2005Q3

REPORT INFORMATION
  Report Type: 
  Country: None (occurrence: None)
  Receive Date: 20050824
  Receipt Date: 20020426
  Transmission Date: 20060218
  Serious: Yes (Congenital Anomaly)
  Sender: FDA-Public Use
  Company Number: FR-GLAXOSMITHKLINE-B0355837A

PATIENT
  Sex: Female
  Weight: 3.12 kg

DRUGS (5)
  1. BECOTIDE [Suspect]
     Indication: ASTHMA
  2. FRAXIPARINE [Suspect]
     Dosage: 1.6MG PER DAY
     Dates: start: 19990401, end: 19990708
  3. VENTOLIN [Suspect]
     Indication: ASTHMA
  4. ACTIVASE [Suspect]
     Dosage: 50MG UNKNOWN
     Dates: start: 19990708, end: 19990708
  5. PREVISCAN [Suspect]
     Indication: THROMBOSIS PROPHYLAXIS
     Dates: start: 19990726, end: 19991215

REACTIONS (1)
  - KIDNEY MALFORMATION [None]
